FAERS Safety Report 5353829-X (Version None)
Quarter: 2007Q2

REPORT INFORMATION
  Report Type: 
  Country: None (occurrence: None)
  Receive Date: 20070608
  Receipt Date: 20070529
  Transmission Date: 20071010
  Serious: Yes (Other)
  Sender: FDA-Public Use
  Company Number: S07-USA-02282-01

PATIENT
  Age: 35 Year
  Sex: Female

DRUGS (1)
  1. LEXAPRO [Suspect]
     Dosage: 20 MG QD
     Dates: start: 20050601

REACTIONS (2)
  - ABORTION SPONTANEOUS [None]
  - PREGNANCY OF PARTNER [None]
